FAERS Safety Report 4846604-3 (Version None)
Quarter: 2005Q4

REPORT INFORMATION
  Report Type: 
  Country: None (occurrence: None)
  Receive Date: 20051202
  Receipt Date: 20051118
  Transmission Date: 20060501
  Serious: Yes (Hospitalization, Disabling)
  Sender: FDA-Public Use
  Company Number: SUSI-2005-00842

PATIENT
  Age: 53 Year
  Sex: Male

DRUGS (1)
  1. PENTASA [Suspect]
     Indication: COLITIS ULCERATIVE
     Dosage: 2000 MG DAILY, ORAL
     Route: 048
     Dates: start: 20040101

REACTIONS (1)
  - SUDDEN HEARING LOSS [None]
